FAERS Safety Report 20132085 (Version 1)
Quarter: 2021Q4

REPORT INFORMATION
  Report Type: Spontaneous
  Country: US (occurrence: US)
  Receive Date: 20211130
  Receipt Date: 20211130
  Transmission Date: 20220303
  Serious: No
  Sender: FDA-Public Use
  Company Number: US-GALDERMA-US2021014845

PATIENT

DRUGS (1)
  1. METROGEL [Suspect]
     Active Substance: METRONIDAZOLE
     Indication: Erythematotelangiectatic rosacea
     Dosage: 1 DOSAGE FORM, BID
     Route: 061

REACTIONS (2)
  - Drug ineffective [Unknown]
  - Intentional product use issue [Recovered/Resolved]
